FAERS Safety Report 6702282-X (Version None)
Quarter: 2010Q2

REPORT INFORMATION
  Report Type: 
  Country: None (occurrence: None)
  Receive Date: 20100429
  Receipt Date: 20100419
  Transmission Date: 20101027
  Serious: Yes (Hospitalization)
  Sender: FDA-Public Use
  Company Number: GXKR2010PL04400

PATIENT
  Age: 17 Year
  Sex: Female

DRUGS (4)
  1. AMLODIPINE [Suspect]
     Dosage: 290 MG, ONCE/SINGLE
     Route: 048
  2. METOPROLOL (NGX) [Suspect]
     Dosage: 500 MG, ONCE/SINGLE
     Route: 048
  3. VERAPAMIL (NGX) [Suspect]
     Dosage: 2400 MG, ONCE/SINGLE
     Route: 048
  4. IBUPROFEN [Concomitant]
     Dosage: 4400 MG, ONCE/SINGLE
     Route: 048

REACTIONS (29)
  - ANURIA [None]
  - APNOEA [None]
  - BRADYCARDIA [None]
  - CARDIOGENIC SHOCK [None]
  - CARDIOVERSION [None]
  - COMA [None]
  - DEPRESSED LEVEL OF CONSCIOUSNESS [None]
  - DIZZINESS [None]
  - ENDOTRACHEAL INTUBATION [None]
  - GASTRIC LAVAGE [None]
  - HEPATIC FUNCTION ABNORMAL [None]
  - HYPERGLYCAEMIA [None]
  - HYPERHIDROSIS [None]
  - HYPERKALAEMIA [None]
  - HYPOPERFUSION [None]
  - HYPOTENSION [None]
  - HYPOTONIA [None]
  - INTRA-AORTIC BALLOON PLACEMENT [None]
  - MECHANICAL VENTILATION [None]
  - METABOLIC ACIDOSIS [None]
  - MIOSIS [None]
  - NAUSEA [None]
  - OVERDOSE [None]
  - PACEMAKER GENERATED RHYTHM [None]
  - PALLOR [None]
  - PULMONARY OEDEMA [None]
  - PUPILLARY REFLEX IMPAIRED [None]
  - SHOCK [None]
  - VENTRICULAR FIBRILLATION [None]
